FAERS Safety Report 6234947-0 (Version None)
Quarter: 2009Q2

REPORT INFORMATION
  Report Type: 
  Country: None (occurrence: None)
  Receive Date: 20090618
  Receipt Date: 20090608
  Transmission Date: 20091009
  Serious: Yes (Hospitalization)
  Sender: FDA-Public Use
  Company Number: B0577902A

PATIENT
  Sex: Female

DRUGS (4)
  1. ONDANSETRON HCL [Suspect]
     Indication: PREMEDICATION
     Dosage: 8MG PER DAY
     Route: 042
     Dates: start: 20090324, end: 20090324
  2. CAELYX [Suspect]
     Indication: OVARIAN CANCER
     Dosage: 65MG PER DAY
     Route: 042
     Dates: start: 20090324, end: 20090324
  3. SOLU-MEDROL [Suspect]
     Indication: PREMEDICATION
     Dosage: 40MG PER DAY
     Route: 042
     Dates: start: 20090324, end: 20090324
  4. PLITICAN [Suspect]
     Indication: PREMEDICATION
     Dosage: 50MG CYCLIC
     Route: 042
     Dates: start: 20090324, end: 20090324

REACTIONS (4)
  - DYSPEPSIA [None]
  - MUCOSAL INFLAMMATION [None]
  - PRURITUS [None]
  - SKIN HYPERPIGMENTATION [None]
